FAERS Safety Report 8023643 (Version 2)
Quarter: 2012Q4

REPORT INFORMATION
  Report Type: 
  Country: DE (occurrence: DE)
  Receive Date: 20110706
  Receipt Date: 20121214
  Transmission Date: 20130627
  Serious: Yes (Hospitalization, Other)
  Sender: FDA-Public Use
  Company Number: DE-GENZYME-THYM-1002566

PATIENT
  Age: 59 Year
  Sex: Female
  Weight: 53 kg

DRUGS (4)
  1. THYMOGLOBULINE [Suspect]
     Indication: RENAL TRANSPLANT
     Dosage: 90 mg, qd
     Route: 065
     Dates: start: 20100430, end: 20100502
  2. TACROLIMUS [Suspect]
     Indication: RENAL TRANSPLANT
     Dosage: 5 mg, qd
     Route: 048
     Dates: start: 20100427, end: 20110103
  3. MYCOPHENOLATE MOFETIL [Suspect]
     Indication: RENAL TRANSPLANT
     Dosage: 1000 mg, bid
     Route: 048
     Dates: start: 20100427, end: 20110103
  4. PREDNISOLONE [Suspect]
     Indication: RENAL TRANSPLANT
     Dosage: 2.5 mg, qd
     Route: 048
     Dates: start: 20100427, end: 20101216

REACTIONS (7)
  - Tubulointerstitial nephritis [Unknown]
  - Diabetes mellitus [Unknown]
  - Anaemia [Unknown]
  - Hypotension [Unknown]
  - Human polyomavirus infection [Recovered/Resolved]
  - BK virus infection [Unknown]
  - Blood creatinine increased [Recovered/Resolved with Sequelae]
